FAERS Safety Report 8108468 (Version 2)
Quarter: 2012Q4

REPORT INFORMATION
  Report Type: 
  Country: US (occurrence: US)
  Receive Date: 20110826
  Receipt Date: 20120829
  Transmission Date: 20130627
  Serious: Yes (Death, Other)
  Sender: FDA-Public Use
  Company Number: US-TYCO HEALTHCARE/MALLINCKRODT-T201101578

PATIENT
  Age: 18 Year
  Sex: Female

DRUGS (2)
  1. MORPHINE [Suspect]
     Indication: PAIN
  2. DILAUDID [Suspect]
     Indication: PAIN
     Dosage: Constant flow of drug

REACTIONS (2)
  - Unresponsive to stimuli [Fatal]
  - Incorrect drug administration rate [Fatal]
